FAERS Safety Report 5242462-6 (Version None)
Quarter: 2007Q1

REPORT INFORMATION
  Report Type: 
  Country: None (occurrence: None)
  Receive Date: 20070221
  Receipt Date: 20070212
  Transmission Date: 20070707
  Serious: Yes (Death, Hospitalization, Other)
  Sender: FDA-Public Use
  Company Number: US-AVENTIS-200621984GDDC

PATIENT
  Age: 64 Year
  Sex: Male
  Weight: 122.47 kg

DRUGS (8)
  1. TAXOTERE [Suspect]
     Route: 042
     Dates: start: 20061030, end: 20061030
  2. CETUXIMAB [Suspect]
     Route: 042
     Dates: start: 20061030, end: 20061030
  3. RADIATION THERAPY [Concomitant]
     Dosage: DOSE: EXTERNAL BEAM, 1MRT
     Dates: end: 20061130
  4. NIFEDIPINE [Concomitant]
  5. LOVASTATIN [Concomitant]
  6. LISINOPRIL [Concomitant]
  7. OXYCODONE HCL [Concomitant]
     Dosage: DOSE: 5/325 MG 1-2 TABLETS Q4H PRN
  8. DOC-Q-LACE [Concomitant]

REACTIONS (10)
  - ANOREXIA [None]
  - CHEST PAIN [None]
  - CONJUNCTIVITIS [None]
  - DERMATITIS INFECTED [None]
  - DYSPNOEA [None]
  - MUCOSAL INFLAMMATION [None]
  - MYOCARDIAL INFARCTION [None]
  - ORAL PAIN [None]
  - RADIATION SKIN INJURY [None]
  - WEIGHT DECREASED [None]
